FAERS Safety Report 5321919-3 (Version None)
Quarter: 2007Q2

REPORT INFORMATION
  Report Type: 
  Country: None (occurrence: None)
  Receive Date: 20070508
  Receipt Date: 20070508
  Transmission Date: 20071010
  Serious: No
  Sender: FDA-Public Use
  Company Number: None

PATIENT
  Age: 66 Year
  Sex: Female
  Weight: 88.4514 kg

DRUGS (1)
  1. SILVER CENTRUM VITAMINS [Suspect]
     Indication: VITAMIN SUPPLEMENTATION
     Dosage: ONE A DAY

REACTIONS (2)
  - MEDICATION ERROR [None]
  - OEDEMA PERIPHERAL [None]
